FAERS Safety Report 7618777-0 (Version None)
Quarter: 2011Q3

REPORT INFORMATION
  Report Type: 
  Country: None (occurrence: None)
  Receive Date: 20110718
  Receipt Date: 20110706
  Transmission Date: 20111222
  Serious: Yes (Other)
  Sender: FDA-Public Use
  Company Number: US-JNJFOC-20110602189

PATIENT
  Sex: Female
  Weight: 68.04 kg

DRUGS (5)
  1. HORMONE REPLACEMENT (NOS) [Concomitant]
     Indication: HORMONE REPLACEMENT THERAPY
     Route: 048
     Dates: start: 20030101
  2. ASTELIN [Concomitant]
     Indication: MULTIPLE ALLERGIES
     Route: 045
     Dates: start: 20000101
  3. REMICADE [Suspect]
     Indication: CROHN'S DISEASE
     Route: 042
     Dates: start: 20030101
  4. SUDAFED 12 HOUR [Concomitant]
     Indication: MULTIPLE ALLERGIES
     Route: 048
     Dates: start: 20030101
  5. NASONEX [Concomitant]
     Indication: MULTIPLE ALLERGIES
     Route: 045
     Dates: start: 20030101

REACTIONS (10)
  - CROHN'S DISEASE [None]
  - BLOOD CHOLESTEROL INCREASED [None]
  - NAUSEA [None]
  - BONE PAIN [None]
  - FATIGUE [None]
  - INAPPROPRIATE SCHEDULE OF DRUG ADMINISTRATION [None]
  - INFUSION RELATED REACTION [None]
  - GASTROOESOPHAGEAL REFLUX DISEASE [None]
  - BONE LOSS [None]
  - ABDOMINAL PAIN UPPER [None]
